FAERS Safety Report 9160094 (Version 1)
Quarter: 2013Q1

REPORT INFORMATION
  Report Type: Spontaneous
  Country: US (occurrence: US)
  Receive Date: 20130313
  Receipt Date: 20130313
  Transmission Date: 20140127
  Serious: Yes (Hospitalization)
  Sender: FDA-Public Use
  Company Number: US-CELGENEUS-163-21880-13023635

PATIENT
  Sex: Female
  Weight: 76 kg

DRUGS (1)
  1. REVLIMID [Suspect]
     Indication: PLASMA CELL MYELOMA
     Dosage: 10 MILLIGRAM
     Route: 048
     Dates: start: 20130129

REACTIONS (4)
  - Atrioventricular block complete [Unknown]
  - Syncope [Unknown]
  - Malaise [Unknown]
  - Vomiting [Unknown]
